FAERS Safety Report 17782025 (Version 1)
Quarter: 2020Q2

REPORT INFORMATION
  Report Type: Spontaneous
  Country: US (occurrence: US)
  Receive Date: 20200513
  Receipt Date: 20200513
  Transmission Date: 20200714
  Serious: Yes (Other)
  Sender: FDA-Public Use
  Company Number: None

PATIENT
  Age: 33 Year
  Sex: Female
  Weight: 104.33 kg

DRUGS (3)
  1. MIRENA [Suspect]
     Active Substance: LEVONORGESTREL
  2. METFORMIN [Concomitant]
     Active Substance: METFORMIN HYDROCHLORIDE
  3. PRENATAL VITAMIN [Concomitant]
     Active Substance: VITAMINS

REACTIONS (10)
  - Weight increased [None]
  - Anxiety [None]
  - Dysmenorrhoea [None]
  - Mood swings [None]
  - Feeling abnormal [None]
  - Depression [None]
  - Abdominal distension [None]
  - Metrorrhagia [None]
  - Alopecia [None]
  - Palpitations [None]

NARRATIVE: CASE EVENT DATE: 20200212
